FAERS Safety Report 7450414-0 (Version None)
Quarter: 2011Q2

REPORT INFORMATION
  Report Type: 
  Country: None (occurrence: None)
  Receive Date: 20110422
  Receipt Date: 20110411
  Transmission Date: 20111010
  Serious: Yes (Death)
  Sender: FDA-Public Use
  Company Number: 2010000307

PATIENT
  Age: 69 Year
  Sex: Female
  Weight: 63.3 kg

DRUGS (29)
  1. CIPROFLOXACIN [Concomitant]
  2. LOVENOX [Concomitant]
  3. PREMARIN [Concomitant]
  4. TYENOL (PARACETAMOL) [Concomitant]
  5. LOPERAMIDE HYDROCHLORIDE (LOPERAMIDE HYDRCLORIDE) [Concomitant]
  6. INFLUENZA VIRUS VACCINE MONOVALENT (INFUENZA VIRUS VACCINE MONOVALENT) [Concomitant]
  7. ERLOTINIB HYDROCHLORIDE [Suspect]
     Indication: NON-SMALL CELL LUNG CANCER
     Dosage: 50 MG, QD, ORAL
     Route: 048
     Dates: start: 20090716, end: 20100106
  8. ZINC (ZINC) [Concomitant]
  9. HYDROCORTISONE ACETATE (HYDROCORTISONE ACETATE) [Concomitant]
  10. MESALAMINE [Concomitant]
  11. LYRICA [Concomitant]
  12. VITAMIN D [Concomitant]
  13. METAMUCIL-2 [Concomitant]
  14. DESONIDE [Concomitant]
  15. ZANTAC [Concomitant]
  16. ARTIFICIAL TEARS (ARTIFICAL TEARS) [Concomitant]
  17. HYDROCORTONE [Concomitant]
  18. CLAVULIN (CLAVULIN) [Concomitant]
  19. CALCIUM (CALCIUM) [Concomitant]
  20. MAGIC (MOUTHWASH) [Concomitant]
  21. CP-751, 871/PLACEBO [Suspect]
     Indication: NON-SMALL CELL LUNG CANCER
     Dosage: 1266 MG, CYCLIC EVERY 3 WEEKS, INTRAVENOUS
     Route: 042
     Dates: start: 20090716, end: 20091229
  22. COLACE (DOCUSATE SODIUM) [Concomitant]
  23. HYDROCORTONE [Concomitant]
  24. PANTOPRAZOLE SODIUM [Concomitant]
  25. RIVASA (ACETYLSALICYLIC ACID) [Concomitant]
  26. NYADERM (NYSTATIN) [Concomitant]
  27. NYSTATIN [Concomitant]
  28. PEDIALYTE (PEDIALYTE) [Concomitant]
  29. LIPITOR [Concomitant]

REACTIONS (4)
  - CARDIO-RESPIRATORY ARREST [None]
  - METABOLIC ACIDOSIS [None]
  - INTESTINAL ISCHAEMIA [None]
  - GENERAL PHYSICAL HEALTH DETERIORATION [None]
